FAERS Safety Report 17047237 (Version 1)
Quarter: 2019Q4

REPORT INFORMATION
  Report Type: Spontaneous
  Country: US (occurrence: US)
  Receive Date: 20191118
  Receipt Date: 20191118
  Transmission Date: 20200122
  Serious: Yes (Other)
  Sender: FDA-Public Use
  Company Number: None

PATIENT
  Age: 60 Year
  Sex: Male

DRUGS (17)
  1. GABAPENTIN. [Concomitant]
     Active Substance: GABAPENTIN
  2. RAMIPRIL. [Concomitant]
     Active Substance: RAMIPRIL
  3. D OXYCYCL I NE [Concomitant]
  4. METOPROLOL ER [Concomitant]
     Active Substance: METOPROLOL SUCCINATE
  5. ROSUVASTATIN. [Concomitant]
     Active Substance: ROSUVASTATIN
  6. CAPECITABINE. [Suspect]
     Active Substance: CAPECITABINE
     Indication: HEPATIC NEOPLASM
     Route: 048
  7. CAPECITABINE. [Suspect]
     Active Substance: CAPECITABINE
     Indication: HEPATIC NEOPLASM
     Route: 048
  8. ANORO ELLIPT [Concomitant]
  9. PROMETH/CODEINE [Concomitant]
     Active Substance: CODEINE\PROMETHAZINE
  10. PROAIR HFA [Concomitant]
     Active Substance: ALBUTEROL SULFATE
  11. ELIQUIS [Concomitant]
     Active Substance: APIXABAN
  12. METFORMIN [Concomitant]
     Active Substance: METFORMIN HYDROCHLORIDE
  13. JARDIANCE [Concomitant]
     Active Substance: EMPAGLIFLOZIN
  14. GLIMEPIRIDE. [Concomitant]
     Active Substance: GLIMEPIRIDE
  15. LORAZEPAM. [Concomitant]
     Active Substance: LORAZEPAM
  16. LOSARTAN. [Concomitant]
     Active Substance: LOSARTAN
  17. CHLOROTHALIDONE [Concomitant]

REACTIONS (3)
  - Cerebrovascular accident [None]
  - Malignant neoplasm progression [None]
  - Metastatic neoplasm [None]
